FAERS Safety Report 13374173 (Version 1)
Quarter: 2017Q1

REPORT INFORMATION
  Report Type: Spontaneous
  Country: US (occurrence: US)
  Receive Date: 20170327
  Receipt Date: 20170327
  Transmission Date: 20170429
  Serious: Yes (Other)
  Sender: FDA-Public Use
  Company Number: US-PFIZER INC-2017132775

PATIENT
  Age: 19 Year
  Sex: Male

DRUGS (1)
  1. CHANTIX [Suspect]
     Active Substance: VARENICLINE TARTRATE
     Dosage: UNK
     Dates: start: 200804

REACTIONS (4)
  - Homicidal ideation [Unknown]
  - Homicide [Unknown]
  - Psychotic disorder [Unknown]
  - Nightmare [Unknown]

NARRATIVE: CASE EVENT DATE: 20080518
